FAERS Safety Report 7354432-2 (Version None)
Quarter: 2011Q1

REPORT INFORMATION
  Report Type: 
  Country: None (occurrence: None)
  Receive Date: 20110316
  Receipt Date: 20110308
  Transmission Date: 20110831
  Serious: Yes (Hospitalization, Disabling)
  Sender: FDA-Public Use
  Company Number: FR-BAYER-2011-021251

PATIENT
  Age: 82 Year
  Sex: Female

DRUGS (2)
  1. NEXAVAR [Suspect]
     Dosage: 2 DF, QD
     Route: 048
  2. NEXAVAR [Suspect]
     Indication: PRODUCT USED FOR UNKNOWN INDICATION
     Dosage: UNK

REACTIONS (7)
  - DEMENTIA [None]
  - DISORIENTATION [None]
  - SKIN DISORDER [None]
  - MEMORY IMPAIRMENT [None]
  - DYSPEPSIA [None]
  - COGNITIVE DISORDER [None]
  - FATIGUE [None]
